FAERS Safety Report 6356857-0 (Version None)
Quarter: 2009Q3

REPORT INFORMATION
  Report Type: 
  Country: None (occurrence: None)
  Receive Date: 20090915
  Receipt Date: 20080530
  Transmission Date: 20100115
  Serious: Yes (Death, Hospitalization)
  Sender: FDA-Public Use
  Company Number: FR-PFIZER INC-2009260937

PATIENT
  Age: 81 Year

DRUGS (21)
  1. IRINOTECAN HCL [Suspect]
     Indication: METASTATIC GASTRIC CANCER
     Route: 042
     Dates: start: 20080103, end: 20080105
  2. FLUOROURACIL [Suspect]
     Indication: METASTATIC GASTRIC CANCER
     Dosage: UNK
     Route: 042
     Dates: start: 20080103, end: 20080105
  3. FOLINIC ACID [Suspect]
     Indication: METASTATIC GASTRIC CANCER
     Dosage: UNK
     Route: 042
     Dates: start: 20080103, end: 20080105
  4. NUTRITIONAL SUPPLEMENT [Concomitant]
     Dosage: UNK
     Dates: start: 20071214
  5. NUTRITIONAL SUPPLEMENT [Concomitant]
     Dosage: UNK
     Route: 051
     Dates: start: 20080122
  6. DURAGESIC-100 [Concomitant]
     Indication: PAIN
     Dosage: 75
     Dates: start: 20071213
  7. DURAGESIC-100 [Concomitant]
     Dosage: UNK
     Route: 062
     Dates: start: 20080121
  8. LOVENOX [Concomitant]
     Indication: ARRHYTHMIA PROPHYLAXIS
     Dosage: 0.4
     Route: 058
     Dates: start: 20071208
  9. RIFAMPICIN [Concomitant]
     Indication: PNEUMOCOCCAL SEPSIS
     Dosage: UNK
     Route: 048
     Dates: start: 20080121, end: 20080208
  10. RIFAMPICIN [Concomitant]
     Indication: PSEUDOMONAS INFECTION
  11. CIFLOX [Concomitant]
     Indication: PNEUMOCOCCAL SEPSIS
     Dosage: UNK
     Route: 048
     Dates: start: 20080121, end: 20080203
  12. CIFLOX [Concomitant]
     Indication: PSEUDOMONAS INFECTION
  13. SOLUPRED [Concomitant]
     Dosage: 60 MG
     Route: 048
     Dates: start: 20080121
  14. ANAFRANIL [Concomitant]
     Indication: DEPRESSION
     Route: 048
     Dates: start: 20080121
  15. MOPRAL [Concomitant]
     Indication: PROPHYLAXIS AGAINST GASTROINTESTINAL ULCER
     Dosage: 20 MG
     Route: 042
     Dates: start: 20071213
  16. MOPRAL [Concomitant]
     Dosage: UNK
     Route: 048
     Dates: start: 20080121
  17. LEXOMIL [Concomitant]
     Indication: ANXIETY
     Dosage: 1 TABLET
     Route: 048
     Dates: start: 20071208
  18. LEXOMIL [Concomitant]
     Dosage: UNK
     Route: 048
     Dates: start: 20080121
  19. ZOMETA [Concomitant]
     Indication: METASTASES TO BONE
     Dosage: 1 INJECTION PER MONTH
     Route: 042
  20. STILNOX [Concomitant]
     Indication: INSOMNIA
     Dosage: 10 MG
     Route: 048
     Dates: start: 20071220
  21. PRIMPERAN [Concomitant]
     Indication: ANTIEMETIC SUPPORTIVE CARE
     Dosage: 30 MG
     Route: 042
     Dates: start: 20071226

REACTIONS (2)
  - ASTHENIA [None]
  - DEATH [None]
